FAERS Safety Report 18104977 (Version 2)
Quarter: 2025Q4

REPORT INFORMATION
  Report Type: Spontaneous
  Country: EU (occurrence: EU)
  Receive Date: 20200804
  Receipt Date: 20251112
  Transmission Date: 20260118
  Serious: Yes (Other)
  Sender: AUROBINDO
  Company Number: EU-GLENMARK PHARMACEUTICALS-2020GMK048745

PATIENT
  Age: 57 Year
  Sex: Female

DRUGS (9)
  1. OLANZAPINE [Suspect]
     Active Substance: OLANZAPINE
     Indication: Schizoaffective disorder
     Dosage: 25 MILLIGRAM, HS (NOCTE) (RESTART)
     Route: 065
  2. OLANZAPINE [Suspect]
     Active Substance: OLANZAPINE
     Dosage: 20 MILLIGRAM, HS (NOCTE)
     Route: 065
     Dates: end: 201409
  3. FLUPENTIXOL [Suspect]
     Active Substance: FLUPENTIXOL
     Indication: Schizoaffective disorder
     Dosage: 40 MILLIGRAM, EVERY 2 WEEKS
     Route: 030
     Dates: end: 201409
  4. BUSPIRONE [Concomitant]
     Active Substance: BUSPIRONE HYDROCHLORIDE
     Indication: Schizoaffective disorder
     Dosage: UNK
     Route: 065
  5. DOSULEPIN HYDROCHLORIDE [Concomitant]
     Active Substance: DOTHIEPIN HYDROCHLORIDE
     Indication: Schizoaffective disorder
     Dosage: 150 MILLIGRAM, HS (NOCTE)
     Route: 065
  6. LOFEPRAMINE [Concomitant]
     Active Substance: LOFEPRAMINE
     Indication: Schizoaffective disorder
     Dosage: UNK
     Route: 065
  7. PIMOZIDE [Concomitant]
     Active Substance: PIMOZIDE
     Indication: Schizoaffective disorder
     Dosage: UNK
     Route: 065
  8. SULPIRIDE [Concomitant]
     Active Substance: SULPIRIDE
     Indication: Schizoaffective disorder
     Dosage: UNK
     Route: 065
  9. TRIFLUOPERAZINE [Concomitant]
     Active Substance: TRIFLUOPERAZINE HYDROCHLORIDE
     Indication: Schizoaffective disorder
     Dosage: UNK
     Route: 065

REACTIONS (7)
  - Persecutory delusion [Recovered/Resolved]
  - Social avoidant behaviour [Recovered/Resolved]
  - Symptom recurrence [Recovered/Resolved]
  - Dystonia [Unknown]
  - Condition aggravated [Recovered/Resolved]
  - Parkinsonism [Unknown]
  - Therapy non-responder [Unknown]
